FAERS Safety Report 20367664 (Version 4)
Quarter: 2022Q1

REPORT INFORMATION
  Report Type: Spontaneous
  Country: IL (occurrence: IL)
  Receive Date: 20220124
  Receipt Date: 20220222
  Transmission Date: 20220423
  Serious: Yes (Hospitalization, Other)
  Sender: FDA-Public Use
  Company Number: IL-BRISTOL-MYERS SQUIBB COMPANY-BMS-2022-009924

PATIENT
  Age: 71 Year
  Sex: Male

DRUGS (2)
  1. ELIQUIS [Suspect]
     Active Substance: APIXABAN
     Indication: Cerebrovascular accident prophylaxis
     Dosage: 2.5 MILLIGRAM, BID
     Route: 065
  2. TOZINAMERAN [Suspect]
     Active Substance: TOZINAMERAN
     Indication: COVID-19 immunisation
     Dosage: UNKNOWN, SINGLE( FOURTH DOSE)
     Route: 065
     Dates: start: 202201, end: 202201

REACTIONS (9)
  - Haemorrhagic cerebral infarction [Unknown]
  - Cerebrovascular accident [Unknown]
  - Confusional state [Unknown]
  - Immunisation [Unknown]
  - Off label use [Unknown]
  - Blood glucose increased [Unknown]
  - Underdose [Unknown]
  - COVID-19 [Recovered/Resolved]
  - Vaccination failure [Unknown]

NARRATIVE: CASE EVENT DATE: 20220101
